FAERS Safety Report 4264821-0 (Version None)
Quarter: 2004Q1

REPORT INFORMATION
  Report Type: 
  Country: None (occurrence: None)
  Receive Date: 20040105
  Receipt Date: 20031223
  Transmission Date: 20041129
  Serious: Yes (Death, Life-Threatening)
  Sender: FDA-Public Use
  Company Number: OXCD20030015

PATIENT
  Age: 31 Year
  Sex: Male

DRUGS (4)
  1. OXYCODONE HCL [Suspect]
     Dosage: PO
     Route: 048
     Dates: end: 20020101
  2. HEROIN [Suspect]
     Indication: DRUG ABUSER
     Dosage: IV
     Route: 042
     Dates: end: 20020101
  3. METHADONE HCL [Suspect]
     Dosage: PO
     Route: 048
     Dates: end: 20020101
  4. DIAZEPAM [Suspect]
     Dosage: PO
     Route: 048
     Dates: end: 20020101

REACTIONS (2)
  - CARDIO-RESPIRATORY ARREST [None]
  - OVERDOSE [None]
